FAERS Safety Report 5583212-3 (Version None)
Quarter: 2008Q1

REPORT INFORMATION
  Report Type: 
  Country: None (occurrence: None)
  Receive Date: 20080107
  Receipt Date: 20071226
  Transmission Date: 20080703
  Serious: Yes (Death, Hospitalization)
  Sender: FDA-Public Use
  Company Number: FR-SANOFI-SYNTHELABO-A01200713123

PATIENT
  Sex: Male

DRUGS (5)
  1. TAHOR [Suspect]
     Indication: ANGIOPLASTY
     Dosage: 10 MG
     Route: 065
     Dates: start: 20060829, end: 20070716
  2. VASTAREL [Suspect]
     Indication: ANGIOPLASTY
     Dosage: 35 MG/L
     Route: 065
     Dates: start: 20060826, end: 20070726
  3. KARDEGIC [Suspect]
     Indication: ANGIOPLASTY
     Dosage: 75 MG
     Route: 048
     Dates: start: 20060826, end: 20070706
  4. PLAVIX [Suspect]
     Indication: ANGIOPLASTY
     Route: 048
     Dates: start: 20060826, end: 20070626
  5. LOVENOX [Concomitant]
     Indication: ANGIOPLASTY
     Dosage: UNK
     Route: 065
     Dates: start: 20060801, end: 20060906

REACTIONS (2)
  - COLITIS ISCHAEMIC [None]
  - COLITIS ULCERATIVE [None]
